FAERS Safety Report 17826388 (Version 1)
Quarter: 2020Q2

REPORT INFORMATION
  Report Type: Report from Study
  Country: FR (occurrence: FR)
  Receive Date: 20200526
  Receipt Date: 20200526
  Transmission Date: 20200714
  Serious: Yes (Other)
  Sender: FDA-Public Use
  Company Number: FR-PURDUE-GBR-2020-0076905

PATIENT
  Age: 8 Month
  Sex: Female

DRUGS (1)
  1. NON-PMN BUPRENORPHINE [Suspect]
     Active Substance: BUPRENORPHINE
     Indication: PRODUCT USED FOR UNKNOWN INDICATION
     Dosage: IT WAS THE PATIENT^S FATHER^S MEDICATION WHICH WAS ACCIDENTLY INGESTED
     Route: 048

REACTIONS (5)
  - Somnolence [Recovering/Resolving]
  - Toxicity to various agents [Unknown]
  - Bundle branch block [Unknown]
  - Accidental exposure to product by child [Unknown]
  - Bradypnoea [Unknown]
